FAERS Safety Report 15993732 (Version 2)
Quarter: 2019Q1

REPORT INFORMATION
  Report Type: Report from Study
  Country: US (occurrence: US)
  Receive Date: 20190222
  Receipt Date: 20190327
  Transmission Date: 20190418
  Serious: Yes (Other)
  Sender: FDA-Public Use
  Company Number: US-SA-2019SA046433

PATIENT
  Age: 74 Year
  Sex: Male

DRUGS (2)
  1. NOVOLOG [Concomitant]
     Active Substance: INSULIN ASPART
     Dosage: UNK UNK, BID
  2. INSULIN GLARGINE [Suspect]
     Active Substance: INSULIN GLARGINE
     Indication: TYPE 2 DIABETES MELLITUS
     Dosage: 60 U, BID
     Route: 058

REACTIONS (3)
  - Stent placement [Unknown]
  - Inappropriate schedule of product administration [Unknown]
  - Blood glucose increased [Not Recovered/Not Resolved]
